FAERS Safety Report 13762823 (Version 3)
Quarter: 2017Q3

REPORT INFORMATION
  Report Type: Spontaneous
  Country: JP (occurrence: JP)
  Receive Date: 20170718
  Receipt Date: 20170911
  Transmission Date: 20171127
  Serious: Yes (Death, Other)
  Sender: FDA-Public Use
  Company Number: JP-009507513-1707JPN003078

PATIENT
  Age: 63 Year
  Sex: Female
  Weight: 56 kg

DRUGS (4)
  1. DEXAMETHASONE. [Suspect]
     Active Substance: DEXAMETHASONE
     Indication: ANGIOCENTRIC LYMPHOMA
     Dosage: UNK
  2. VINCRISTINE [Suspect]
     Active Substance: VINCRISTINE
     Indication: ANGIOCENTRIC LYMPHOMA
     Dosage: UNK
     Route: 042
  3. ADRIAMYCIN [Suspect]
     Active Substance: DOXORUBICIN HYDROCHLORIDE
     Indication: ANGIOCENTRIC LYMPHOMA
     Dosage: UNK
     Route: 042
  4. RITUXIMAB. [Suspect]
     Active Substance: RITUXIMAB
     Indication: ANGIOCENTRIC LYMPHOMA
     Dosage: UNK
     Route: 042

REACTIONS (1)
  - Bone marrow failure [Fatal]
